FAERS Safety Report 24891506 (Version 1)
Quarter: 2025Q1

REPORT INFORMATION
  Report Type: Spontaneous
  Country: US (occurrence: US)
  Receive Date: 20250127
  Receipt Date: 20250127
  Transmission Date: 20250408
  Serious: Yes (Death)
  Sender: INCYTE
  Company Number: US-EVENT-001444

PATIENT

DRUGS (2)
  1. MONJUVI [Suspect]
     Active Substance: TAFASITAMAB-CXIX
     Route: 065
  2. LENALIDOMIDE [Concomitant]
     Active Substance: LENALIDOMIDE
     Indication: Product used for unknown indication
     Route: 065

REACTIONS (1)
  - COVID-19 [Fatal]
